FAERS Safety Report 7310118-1 (Version None)
Quarter: 2011Q1

REPORT INFORMATION
  Report Type: 
  Country: None (occurrence: None)
  Receive Date: 20110224
  Receipt Date: 20110216
  Transmission Date: 20110831
  Serious: No
  Sender: FDA-Public Use
  Company Number: US-PFIZER INC-2011005266

PATIENT
  Sex: Female
  Weight: 62 kg

DRUGS (4)
  1. VITAMIN B6 [Concomitant]
     Dosage: 100 MG, UNK
  2. CHANTIX [Suspect]
     Indication: SMOKING CESSATION THERAPY
     Dosage: 0.5 MG, 1X/DAY
     Dates: start: 20101211
  3. CHLORPHENIRAMINE MAL/IBUPROFEN/PSEUDOEPHEDRINE HCL [Concomitant]
     Dosage: 400 MG, 2X/DAY
  4. CHANTIX [Suspect]
     Dosage: 1 MG, 2X/DAY
     Route: 048
     Dates: end: 20110117

REACTIONS (4)
  - AGITATION [None]
  - NERVOUSNESS [None]
  - ABNORMAL DREAMS [None]
  - ANXIETY [None]
